FAERS Safety Report 8437420-4 (Version None)
Quarter: 2012Q2

REPORT INFORMATION
  Report Type: 
  Country: None (occurrence: None)
  Receive Date: 20120614
  Receipt Date: 20120321
  Transmission Date: 20120825
  Serious: No
  Sender: FDA-Public Use
  Company Number: US-AMGEN-USASP2012018195

PATIENT
  Age: 88 Year
  Sex: Female

DRUGS (3)
  1. PROLIA [Suspect]
     Indication: OSTEOPOROSIS POSTMENOPAUSAL
     Dosage: UNK UNK, Q6MO
     Dates: start: 20120214
  2. EYE DROPS [Concomitant]
  3. VITAMINS                           /00067501/ [Concomitant]

REACTIONS (5)
  - PAIN IN JAW [None]
  - ABDOMINAL DISCOMFORT [None]
  - INSOMNIA [None]
  - GINGIVAL PAIN [None]
  - TOOTHACHE [None]
